FAERS Safety Report 24425698 (Version 1)
Quarter: 2024Q4

REPORT INFORMATION
  Report Type: Spontaneous
  Country: US (occurrence: US)
  Receive Date: 20241011
  Receipt Date: 20241011
  Transmission Date: 20250114
  Serious: Yes (Other)
  Sender: APOTEX
  Company Number: US-APOTEX-2024AP011738

PATIENT
  Age: 41 Year
  Sex: Male

DRUGS (1)
  1. DASATINIB [Suspect]
     Active Substance: DASATINIB
     Indication: Chronic myeloid leukaemia
     Dosage: 140 MILLIGRAM
     Route: 065

REACTIONS (2)
  - Pulmonary hypertension [Unknown]
  - Pleural effusion [Recovered/Resolved]
